FAERS Safety Report 5346206-9 (Version None)
Quarter: 2007Q2

REPORT INFORMATION
  Report Type: 
  Country: None (occurrence: None)
  Receive Date: 20070605
  Receipt Date: 20070531
  Transmission Date: 20071010
  Serious: Yes (Life-Threatening, Hospitalization)
  Sender: FDA-Public Use
  Company Number: IT-SANOFI-SYNTHELABO-A06200700064

PATIENT
  Sex: Female

DRUGS (4)
  1. ACIDO FOLINICO [Concomitant]
     Indication: COLON CANCER
     Route: 042
     Dates: start: 20070129, end: 20070130
  2. ELOXATIN [Suspect]
     Indication: COLON CANCER
     Route: 041
     Dates: start: 20070129, end: 20070129
  3. FLUOROURACIL [Concomitant]
     Indication: COLON CANCER
     Route: 040
     Dates: start: 20070129, end: 20070130
  4. FLUOROURACIL [Concomitant]
     Route: 041
     Dates: start: 20070129, end: 20070130

REACTIONS (5)
  - ANURIA [None]
  - DIARRHOEA [None]
  - HYPOVOLAEMIC SHOCK [None]
  - MYOCARDIAL INFARCTION [None]
  - VOMITING [None]
